FAERS Safety Report 8248320-7 (Version None)
Quarter: 2012Q1

REPORT INFORMATION
  Report Type: 
  Country: None (occurrence: None)
  Receive Date: 20120330
  Receipt Date: 20120326
  Transmission Date: 20120608
  Serious: Yes (Hospitalization, Other)
  Sender: FDA-Public Use
  Company Number: US-ASTRAZENECA-2012SE12339

PATIENT
  Age: 44 Year
  Sex: Female
  Weight: 64 kg

DRUGS (28)
  1. SEROQUEL [Suspect]
     Route: 048
  2. TEGRETOL [Concomitant]
     Indication: CONVULSION
     Route: 048
     Dates: start: 20060101
  3. LISINOPRIL [Concomitant]
     Indication: HYPERTENSION
     Dates: start: 20110101
  4. PHENOBARBITAL TAB [Concomitant]
     Indication: CONVULSION
  5. SEROQUEL [Suspect]
     Route: 048
     Dates: start: 20120205
  6. SEROQUEL [Suspect]
     Indication: DEPRESSION
     Route: 048
     Dates: start: 19870101
  7. SEROQUEL [Suspect]
     Route: 048
     Dates: start: 20110901
  8. SEROQUEL [Suspect]
     Route: 048
  9. SEROQUEL [Suspect]
     Route: 048
  10. SEROQUEL [Suspect]
     Route: 048
  11. SEROQUEL [Suspect]
     Route: 048
     Dates: start: 20110101
  12. SEROQUEL [Suspect]
     Indication: BIPOLAR DISORDER
     Route: 048
     Dates: start: 19870101
  13. SEROQUEL [Suspect]
     Indication: SLEEP DISORDER
     Route: 048
     Dates: start: 19870101
  14. SEROQUEL [Suspect]
     Route: 048
  15. BLOOD PRESSURE MEDICATION [Concomitant]
     Indication: HYPERTENSION
     Route: 048
  16. SEROQUEL [Suspect]
     Route: 048
  17. SEROQUEL [Suspect]
     Route: 048
  18. SEROQUEL [Suspect]
     Route: 048
     Dates: start: 20120205
  19. SEROQUEL [Suspect]
     Route: 048
     Dates: start: 20120205
  20. SEROQUEL [Suspect]
     Route: 048
     Dates: start: 20110101
  21. SEROQUEL [Suspect]
     Route: 048
  22. SEROQUEL [Suspect]
     Route: 048
  23. SEROQUEL [Suspect]
     Route: 048
     Dates: start: 20110901
  24. SEROQUEL [Suspect]
     Route: 048
     Dates: start: 20110901
  25. SEROQUEL [Suspect]
     Route: 048
     Dates: start: 20110101
  26. KEPPRA [Concomitant]
     Indication: CONVULSION
     Route: 048
     Dates: start: 20060101
  27. DILANTIN [Concomitant]
     Indication: CONVULSION
     Route: 048
     Dates: start: 20060101
  28. COGENTIN [Concomitant]

REACTIONS (11)
  - SOMNOLENCE [None]
  - ENDOMETRIOSIS [None]
  - BLOOD GLUCOSE DECREASED [None]
  - CONVULSION [None]
  - THERAPEUTIC RESPONSE UNEXPECTED [None]
  - INSOMNIA [None]
  - DIARRHOEA [None]
  - TREMOR [None]
  - DYSARTHRIA [None]
  - SLEEP DISORDER [None]
  - CONSTIPATION [None]
